FAERS Safety Report 11721484 (Version 4)
Quarter: 2016Q4

REPORT INFORMATION
  Report Type: Spontaneous
  Country: US (occurrence: US)
  Receive Date: 20151111
  Receipt Date: 20161024
  Transmission Date: 20170206
  Serious: Yes (Hospitalization)
  Sender: FDA-Public Use
  Company Number: US-JNJFOC-20151003252

PATIENT
  Age: 61 Year
  Sex: Female

DRUGS (8)
  1. XARELTO [Suspect]
     Active Substance: RIVAROXABAN
     Indication: COAGULOPATHY
     Route: 048
     Dates: start: 201301, end: 201305
  2. XARELTO [Suspect]
     Active Substance: RIVAROXABAN
     Indication: ATRIAL FIBRILLATION
     Route: 048
     Dates: start: 201301, end: 201305
  3. XARELTO [Suspect]
     Active Substance: RIVAROXABAN
     Indication: THROMBOSIS PROPHYLAXIS
     Route: 048
     Dates: start: 201301, end: 201305
  4. XARELTO [Suspect]
     Active Substance: RIVAROXABAN
     Indication: THROMBOSIS PROPHYLAXIS
     Route: 048
     Dates: start: 20130401, end: 20130613
  5. XARELTO [Suspect]
     Active Substance: RIVAROXABAN
     Indication: ATRIAL FIBRILLATION
     Route: 048
     Dates: start: 20130401, end: 20130613
  6. XARELTO [Suspect]
     Active Substance: RIVAROXABAN
     Indication: CEREBROVASCULAR ACCIDENT PROPHYLAXIS
     Route: 048
     Dates: start: 201301, end: 201305
  7. XARELTO [Suspect]
     Active Substance: RIVAROXABAN
     Indication: COAGULOPATHY
     Route: 048
     Dates: start: 20130401, end: 20130613
  8. XARELTO [Suspect]
     Active Substance: RIVAROXABAN
     Indication: CEREBROVASCULAR ACCIDENT PROPHYLAXIS
     Route: 048
     Dates: start: 20130401, end: 20130613

REACTIONS (5)
  - Gastrointestinal haemorrhage [Recovered/Resolved]
  - Ulcer haemorrhage [Unknown]
  - Chest pain [Unknown]
  - Internal haemorrhage [Unknown]
  - Haematemesis [Unknown]

NARRATIVE: CASE EVENT DATE: 2013
